FAERS Safety Report 19245754 (Version 1)
Quarter: 2021Q2

REPORT INFORMATION
  Report Type: Other
  Country: ES (occurrence: ES)
  Receive Date: 20210511
  Receipt Date: 20210511
  Transmission Date: 20210717
  Serious: Yes (Other)
  Sender: FDA-Public Use
  Company Number: ES-CELLTRION INC.-2021ES006224

PATIENT

DRUGS (24)
  1. CARBOPLATIN. [Suspect]
     Active Substance: CARBOPLATIN
     Indication: DIFFUSE LARGE B-CELL LYMPHOMA
     Dosage: DAY 1
     Route: 065
  2. VALTREX [Concomitant]
     Active Substance: VALACYCLOVIR HYDROCHLORIDE
     Dosage: 1.000 MG/8 HOURS
  3. ACFOL [Concomitant]
     Active Substance: FOLIC ACID
     Dosage: 5 MG 1 TABLET AT MEAL
  4. EPREX [Concomitant]
     Active Substance: ERYTHROPOIETIN
     Dosage: 40.000/WEEKLY
  5. NIVOLUMAB [Concomitant]
     Active Substance: NIVOLUMAB
     Dosage: 5TH THERAPY LINE FIRST PART OF THE 1ST NIVOLUMAB AS BRIDGING THERAPY TO CAR?T.
     Dates: start: 20200916
  6. RITUXIMAB (UNKNOWN) [Suspect]
     Active Substance: RITUXIMAB
     Indication: DIFFUSE LARGE B-CELL LYMPHOMA
     Dosage: 375 MG/M2
     Route: 065
  7. ALMAX FORTE [Concomitant]
     Dosage: 1.5 G
  8. SEPTRIN [Concomitant]
     Active Substance: SULFAMETHOXAZOLE\TRIMETHOPRIM
     Dosage: 1 TABLET DAILY
  9. CIPROFLOXACINE [CIPROFLOXACIN] [Concomitant]
     Active Substance: CIPROFLOXACIN
  10. METHOTREXATE. [Concomitant]
     Active Substance: METHOTREXATE
     Dosage: 3 G/M2
     Dates: start: 20200920
  11. CLEXANE [Concomitant]
     Active Substance: ENOXAPARIN SODIUM
     Dosage: 80 MG
  12. DEXAMETHASONE. [Suspect]
     Active Substance: DEXAMETHASONE
     Indication: DIFFUSE LARGE B-CELL LYMPHOMA
     Dosage: 40 MG DAYS 1 AND 4
     Route: 065
  13. TOCILIZUMAB. [Concomitant]
     Active Substance: TOCILIZUMAB
     Indication: CYTOKINE RELEASE SYNDROME
     Route: 065
  14. ESOMEPRAZOLE. [Concomitant]
     Active Substance: ESOMEPRAZOLE MAGNESIUM
     Dosage: 0 MG
  15. FUNGAREST [KETOCONAZOLE] [Concomitant]
     Dosage: EVERY 12 HOURS AT AXILLA
  16. DIAZEPAN [Concomitant]
     Active Substance: DIAZEPAM
     Dosage: UNK, EVERY 6 HOURS
  17. GEMCITABINE. [Suspect]
     Active Substance: GEMCITABINE
     Indication: DIFFUSE LARGE B-CELL LYMPHOMA
     Dosage: 1000 MG/M2 AT DAYS 1 AND 8
     Route: 065
  18. ZALDIAR [Concomitant]
     Active Substance: ACETAMINOPHEN\TRAMADOL HYDROCHLORIDE
     Dosage: 37,5/325 MG
  19. NIVOLUMAB [Concomitant]
     Active Substance: NIVOLUMAB
     Dosage: 3RD DOSE OF NIVOLUMAB
     Dates: start: 20201013
  20. BISOPROLOL [Concomitant]
     Active Substance: BISOPROLOL
     Dosage: 1.25 MG 1 TABLET AT BREAKFAST
  21. AMITRIPTYLINE [Concomitant]
     Active Substance: AMITRIPTYLINE
     Dosage: 10 MG 1 TABLET AT DINNER
  22. VERSATIS [Concomitant]
     Active Substance: LIDOCAINE
     Dosage: DRESSING: 1 APPLICATION EVERY 12 HOURS.
  23. FLUCONAZOLE. [Concomitant]
     Active Substance: FLUCONAZOLE
     Dosage: 200 MG 1 CAPSULE AT BREAKFAST AND DINNER
  24. METHOTREXATE. [Concomitant]
     Active Substance: METHOTREXATE
     Dosage: 3 G

REACTIONS (3)
  - Pancytopenia [Unknown]
  - Intentional product use issue [Unknown]
  - Off label use [Unknown]
